FAERS Safety Report 24178324 (Version 9)
Quarter: 2025Q3

REPORT INFORMATION
  Report Type: Spontaneous
  Country: US (occurrence: US)
  Receive Date: 20240806
  Receipt Date: 20250805
  Transmission Date: 20251020
  Serious: Yes (Other)
  Sender: CSL BEHRING
  Company Number: US-BEH-2024176556

PATIENT
  Age: 38 Year
  Sex: Female

DRUGS (32)
  1. HIZENTRA [Suspect]
     Active Substance: HUMAN IMMUNOGLOBULIN G
     Indication: Immunodeficiency common variable
     Dosage: 10 G /50ML, QW
     Route: 058
     Dates: start: 20240416
  2. HIZENTRA [Suspect]
     Active Substance: HUMAN IMMUNOGLOBULIN G
     Dosage: 10 G/50 ML, QW
     Route: 058
     Dates: start: 20241023
  3. HIZENTRA [Suspect]
     Active Substance: HUMAN IMMUNOGLOBULIN G
     Dosage: 10 G/50 ML, QW
     Route: 058
     Dates: start: 20241023
  4. HIZENTRA [Suspect]
     Active Substance: HUMAN IMMUNOGLOBULIN G
     Dosage: 10 G/50 ML, QW
     Route: 058
     Dates: start: 20241023
  5. HIZENTRA [Suspect]
     Active Substance: HUMAN IMMUNOGLOBULIN G
     Dosage: 10 G/50 ML, QW
     Route: 058
     Dates: start: 20241023
  6. ACETAMINOPHEN [Concomitant]
     Active Substance: ACETAMINOPHEN
  7. ACTEMRA [Concomitant]
     Active Substance: TOCILIZUMAB
  8. ACTEMRA [Concomitant]
     Active Substance: TOCILIZUMAB
  9. ALPRAZOLAM [Concomitant]
     Active Substance: ALPRAZOLAM
  10. BUPRENORPHINE [Concomitant]
     Active Substance: BUPRENORPHINE
  11. BUPRENORPHINE [Concomitant]
     Active Substance: BUPRENORPHINE
  12. CYCLOBENZAPRINE [Concomitant]
     Active Substance: CYCLOBENZAPRINE
  13. Cyclopentol [Concomitant]
  14. DEXAMETHASONE [Concomitant]
     Active Substance: DEXAMETHASONE
  15. ERYTHROMYCIN [Concomitant]
     Active Substance: ERYTHROMYCIN
  16. FLUCELVAX NOS [Concomitant]
     Active Substance: INFLUENZA A VIRUS A/BRISBANE/10/2010 (H1N1) ANTIGEN (MDCK CELL DERIVED, PROPIOLACTONE INACTIVATED)\I
  17. MEDROXYPROGESTERONE [Concomitant]
     Active Substance: MEDROXYPROGESTERONE
  18. NALOXONE HYDROCHLORIDE [Concomitant]
     Active Substance: NALOXONE HYDROCHLORIDE
  19. ONDANSETRON [Concomitant]
     Active Substance: ONDANSETRON
  20. OSELTAMIVIR [Concomitant]
     Active Substance: OSELTAMIVIR
  21. OXYCODONE [Concomitant]
     Active Substance: OXYCODONE
  22. OXYCODONE [Concomitant]
     Active Substance: OXYCODONE
  23. PREDNISOLONE [Concomitant]
     Active Substance: PREDNISOLONE
  24. PREDNISONE [Concomitant]
     Active Substance: PREDNISONE
  25. TIZANIDINE [Concomitant]
     Active Substance: TIZANIDINE
  26. TIZANIDINE [Concomitant]
     Active Substance: TIZANIDINE
  27. TRETINOIN [Concomitant]
     Active Substance: TRETINOIN
  28. XANAX [Concomitant]
     Active Substance: ALPRAZOLAM
  29. ZOFRAN [Concomitant]
     Active Substance: ONDANSETRON HYDROCHLORIDE
  30. LIDOCAINE\PRILOCAINE HYDROCHLORIDE [Concomitant]
     Active Substance: LIDOCAINE\PRILOCAINE HYDROCHLORIDE
  31. BENADRYL [Concomitant]
     Active Substance: DIPHENHYDRAMINE HYDROCHLORIDE
  32. TYLENOL [Concomitant]
     Active Substance: ACETAMINOPHEN

REACTIONS (27)
  - Drug ineffective [Unknown]
  - Drug ineffective [Unknown]
  - Drug ineffective [Recovered/Resolved]
  - Drug ineffective [Unknown]
  - Loss of personal independence in daily activities [Unknown]
  - Pain [Unknown]
  - Drug ineffective [Not Recovered/Not Resolved]
  - Immunodeficiency common variable [Not Recovered/Not Resolved]
  - Urinary tract infection [Not Recovered/Not Resolved]
  - Infection [Not Recovered/Not Resolved]
  - Respiratory tract infection viral [Unknown]
  - Oropharyngeal pain [Recovered/Resolved]
  - Pain [Recovered/Resolved]
  - Pyrexia [Recovered/Resolved]
  - Illness [Recovered/Resolved]
  - Pain [Unknown]
  - Loss of personal independence in daily activities [Unknown]
  - Loss of personal independence in daily activities [Recovered/Resolved]
  - Therapy interrupted [Unknown]
  - Intentional dose omission [Unknown]
  - Product dose omission issue [Unknown]
  - Loss of personal independence in daily activities [Not Recovered/Not Resolved]
  - Malaise [Recovered/Resolved]
  - Epstein-Barr virus infection [Recovered/Resolved]
  - Asthenia [Recovered/Resolved]
  - Fatigue [Recovered/Resolved]
  - Loss of personal independence in daily activities [Not Recovered/Not Resolved]

NARRATIVE: CASE EVENT DATE: 20240101
